FAERS Safety Report 7421230 (Version 4)
Quarter: 2013Q3

REPORT INFORMATION
  Report Type: Spontaneous
  Country: US (occurrence: US)
  Receive Date: 20100616
  Receipt Date: 20130820
  Transmission Date: 20140515
  Serious: Yes (Hospitalization, Other)
  Sender: FDA-Public Use
  Company Number: US-ASTRAZENECA-2009UW18729

PATIENT
  Age: 74 Year
  Sex: Male
  Weight: 104.3 kg

DRUGS (10)
  1. ATACAND [Suspect]
     Indication: CEREBROVASCULAR ACCIDENT
     Route: 048
  2. ATACAND [Suspect]
     Indication: CARDIAC OPERATION
     Route: 048
  3. ATACAND [Suspect]
     Indication: HYPERTENSION
     Route: 048
  4. HCTZ [Concomitant]
  5. ASA [Concomitant]
  6. VITAMINS [Concomitant]
  7. DIURETIC [Concomitant]
  8. DIGOXIN [Concomitant]
  9. PROBIOTIC [Concomitant]
  10. ZEBETA [Concomitant]

REACTIONS (41)
  - Cellulitis [Unknown]
  - Localised infection [Unknown]
  - Rotator cuff syndrome [Unknown]
  - Feeling abnormal [Unknown]
  - Weight increased [Unknown]
  - Memory impairment [Unknown]
  - Nocturia [Unknown]
  - Decreased appetite [Unknown]
  - Abnormal dreams [Unknown]
  - Dry mouth [Unknown]
  - Depression [Unknown]
  - Fatigue [Unknown]
  - Dyspepsia [Unknown]
  - Panic attack [Unknown]
  - Dyspnoea [Unknown]
  - Hypoglycaemia [Unknown]
  - Blood glucose increased [Unknown]
  - Muscular weakness [Unknown]
  - Mobility decreased [Unknown]
  - Somnolence [Unknown]
  - Blood iron increased [Unknown]
  - Hostility [Unknown]
  - Bone disorder [Unknown]
  - Hypoaesthesia [Unknown]
  - Dyspnoea [Unknown]
  - Tension headache [Unknown]
  - Muscle tightness [Unknown]
  - Blood glucose abnormal [Unknown]
  - Irritability [Unknown]
  - Gastrointestinal disorder [Unknown]
  - Flatulence [Unknown]
  - Muscle tightness [Unknown]
  - Limb discomfort [Unknown]
  - Feeling abnormal [Unknown]
  - Gait disturbance [Unknown]
  - Body height decreased [Unknown]
  - Adverse event [Unknown]
  - Glucose tolerance impaired [Unknown]
  - Hyperglycaemia [Unknown]
  - Blood creatine phosphokinase increased [Unknown]
  - Hyperkalaemia [Unknown]
